FAERS Safety Report 21064057 (Version 3)
Quarter: 2022Q3

REPORT INFORMATION
  Report Type: Spontaneous
  Country: MX (occurrence: MX)
  Receive Date: 20220711
  Receipt Date: 20220819
  Transmission Date: 20221027
  Serious: Yes (Other)
  Sender: FDA-Public Use
  Company Number: MX-MLMSERVICE-20220624-3633351-1

PATIENT
  Age: 29 Year
  Sex: Female
  Weight: 48 kg

DRUGS (2)
  1. CARBOPLATIN [Suspect]
     Active Substance: CARBOPLATIN
     Indication: Ovarian germ cell tumour
     Dosage: (ON DAY 15 MG/ML/MINUTE) 280 MG ON DAY 1 ??CUMULATIVE DOSE: 1 CYCLICAL
     Dates: start: 20190610, end: 20190610
  2. IFOSFAMIDE [Suspect]
     Active Substance: IFOSFAMIDE
     Indication: Ovarian germ cell tumour
     Dosage: 1,200 MG/DAY ON DAYS 1 THROUGH 5
     Dates: start: 20190610, end: 20190614

REACTIONS (2)
  - Haematotoxicity [Unknown]
  - Anaemia [Recovering/Resolving]

NARRATIVE: CASE EVENT DATE: 20190626
